FAERS Safety Report 7685170-4 (Version None)
Quarter: 2011Q3

REPORT INFORMATION
  Report Type: 
  Country: None (occurrence: None)
  Receive Date: 20110816
  Receipt Date: 20110812
  Transmission Date: 20111222
  Serious: Yes (Hospitalization, Other)
  Sender: FDA-Public Use
  Company Number: PH-PFIZER INC-2007018112

PATIENT
  Age: 60 Year
  Sex: Male
  Weight: 64 kg

DRUGS (9)
  1. ATENOLOL [Concomitant]
     Route: 048
     Dates: start: 20020701, end: 20070306
  2. FERROUS SULFATE TAB [Concomitant]
     Route: 048
     Dates: start: 20001102, end: 20070314
  3. CALCIBLOC [Concomitant]
     Dosage: OD
     Dates: start: 20020314
  4. CALCIUM CARBONATE [Concomitant]
     Route: 048
     Dates: start: 20001102, end: 20070314
  5. NEUROBION [Concomitant]
     Route: 048
     Dates: start: 20060328, end: 20070314
  6. SUNITINIB MALATE [Suspect]
     Indication: RENAL CELL CARCINOMA
     Dosage: UNK
     Route: 048
     Dates: start: 20060301
  7. SUNITINIB MALATE [Suspect]
     Dosage: 12.5 MG, 3X/DAY
     Route: 048
     Dates: start: 20070206, end: 20070305
  8. FLUIMUCIL [Concomitant]
     Dates: start: 20041203, end: 20070314
  9. NEURONTIN [Concomitant]
     Route: 048
     Dates: start: 20060321, end: 20070314

REACTIONS (5)
  - PLEURAL EFFUSION [None]
  - PERICARDIAL EFFUSION [None]
  - GENERALISED OEDEMA [None]
  - HYPONATRAEMIA [None]
  - HYPOTHYROIDISM [None]
